FAERS Safety Report 21032494 (Version 1)
Quarter: 2022Q2

REPORT INFORMATION
  Report Type: Spontaneous
  Country: US (occurrence: None)
  Receive Date: 20220630
  Receipt Date: 20220630
  Transmission Date: 20220720
  Serious: No
  Sender: FDA-Public Use
  Company Number: None

PATIENT
  Age: 55 Year
  Sex: Female
  Weight: 185.8 kg

DRUGS (10)
  1. CAPECITABINE [Suspect]
     Active Substance: CAPECITABINE
     Indication: Breast cancer female
     Dosage: FREQUENCY : TWICE A DAY;?
     Route: 048
     Dates: start: 202203
  2. CETRIZINE [Concomitant]
  3. FLONASE [Concomitant]
  4. GREE TEA [Concomitant]
  5. LIDOCAINE-PRILOCAINE [Concomitant]
  6. VITAMINS [Concomitant]
     Active Substance: VITAMINS
  7. MUPIROCIN [Concomitant]
  8. KRILL OIL [Concomitant]
  9. PROBIOTIC [Concomitant]
  10. ZINC [Concomitant]

REACTIONS (2)
  - Palmar-plantar erythrodysaesthesia syndrome [None]
  - Skin discolouration [None]
